FAERS Safety Report 4887523-6 (Version None)
Quarter: 2006Q1

REPORT INFORMATION
  Report Type: 
  Country: None (occurrence: None)
  Receive Date: 20060118
  Receipt Date: 20060106
  Transmission Date: 20060701
  Serious: Yes (Other)
  Sender: FDA-Public Use
  Company Number: 2006006253

PATIENT
  Age: 31 Year
  Sex: Female

DRUGS (2)
  1. DEPO-PROVERA [Suspect]
     Indication: ENDOMETRIOSIS
     Dosage: 150 MG (150 MG, 1ST INJ. EVERY THREE MONTHS), INTRAMUSCULAR
     Route: 030
     Dates: start: 20050401, end: 20050401
  2. DEPO-PROVERA [Suspect]
     Indication: ENDOMETRIOSIS
     Dosage: 150 MG (150 MG, 1ST INJ. EVERY THREE MONTHS), INTRAMUSCULAR
     Route: 030
     Dates: start: 20051001, end: 20051001

REACTIONS (3)
  - ACCESSORY BREAST [None]
  - AXILLARY MASS [None]
  - BREAST MASS [None]
